FAERS Safety Report 12862931 (Version 3)
Quarter: 2017Q1

REPORT INFORMATION
  Report Type: Spontaneous
  Country: JP (occurrence: JP)
  Receive Date: 20161019
  Receipt Date: 20170224
  Transmission Date: 20170428
  Serious: Yes (Hospitalization)
  Sender: FDA-Public Use
  Company Number: JP-OTSUKA-2016_024452AA

PATIENT
  Age: 92 Year
  Sex: Female

DRUGS (7)
  1. LASIX [Concomitant]
     Active Substance: FUROSEMIDE
     Indication: PRODUCT USED FOR UNKNOWN INDICATION
     Dosage: 40 MG, UNK
     Route: 065
     Dates: start: 20161006
  2. ALDACTONE [Concomitant]
     Active Substance: SPIRONOLACTONE
     Indication: PRODUCT USED FOR UNKNOWN INDICATION
     Dosage: 12.5 MG, UNK
     Route: 065
     Dates: end: 20161007
  3. LASIX [Concomitant]
     Active Substance: FUROSEMIDE
     Dosage: 60 MG, UNK
     Route: 065
  4. SAMSCA [Suspect]
     Active Substance: TOLVAPTAN
     Indication: DEVICE MALFUNCTION
     Dosage: 15 MG, QD
     Route: 048
     Dates: start: 20161006, end: 20161008
  5. SAMSCA [Suspect]
     Active Substance: TOLVAPTAN
     Dosage: 7.5 MG, QD
     Route: 048
     Dates: start: 20160930, end: 20161002
  6. SAMSCA [Suspect]
     Active Substance: TOLVAPTAN
     Dosage: 3.75 MG, QD
     Route: 048
     Dates: start: 20160928, end: 20160929
  7. SAMSCA [Suspect]
     Active Substance: TOLVAPTAN
     Dosage: 11.25 MG, QD
     Route: 048
     Dates: start: 20161003, end: 20161005

REACTIONS (3)
  - Hepatic function abnormal [Not Recovered/Not Resolved]
  - Cough [Unknown]
  - Urine output increased [Unknown]

NARRATIVE: CASE EVENT DATE: 20160928
